FAERS Safety Report 25835967 (Version 2)
Quarter: 2025Q4

REPORT INFORMATION
  Report Type: Spontaneous
  Country: US (occurrence: US)
  Receive Date: 20250923
  Receipt Date: 20251006
  Transmission Date: 20260118
  Serious: No
  Sender: BIOVITRUM
  Company Number: US-BIOVITRUM-2025-US-012881

PATIENT
  Age: 79 Year
  Sex: Male

DRUGS (19)
  1. KINERET [Suspect]
     Active Substance: ANAKINRA
     Indication: Erdheim-Chester disease
     Dosage: DAILY (100 MG/0.67 ML SYRINGE, INJECT 2 SYRINGES (1.34 ML) EVERYDAY FOR 14 DAYS.)
     Route: 058
  2. KINERET [Suspect]
     Active Substance: ANAKINRA
     Indication: Cancer pain
     Dosage: QD
     Route: 058
     Dates: start: 20250826
  3. KINERET [Suspect]
     Active Substance: ANAKINRA
     Dosage: QD
     Route: 058
  4. OXYCODONE [Suspect]
     Active Substance: OXYCODONE
     Indication: Pain
     Dosage: 2 TABLETS BY MOUTH EVERY 6 HOURS IF NEEDED.
     Route: 048
  5. ATORVASTATIN [Concomitant]
     Active Substance: ATORVASTATIN
     Indication: Product used for unknown indication
     Dosage: 1 TABLET BY MOUTH EVERY DAY AT BEDTIME.
     Route: 048
  6. BUPROPION [Concomitant]
     Active Substance: BUPROPION
     Indication: Product used for unknown indication
     Dosage: 1 TABLET BY MOUTH EVERY MORNING
     Route: 048
  7. CLINDAMYCIN PHOSPHATE [Concomitant]
     Active Substance: CLINDAMYCIN PHOSPHATE
     Indication: Product used for unknown indication
     Dosage: 1 % LOTION, APPLY TO THE AFFECTED AREA TWO TIMES DAILY IF NEEDED.
     Route: 061
  8. CLOPIDOGREL [Concomitant]
     Active Substance: CLOPIDOGREL BISULFATE
     Indication: Product used for unknown indication
     Dosage: 1 TABLET BY MOUTH EVERY MORNING
     Route: 048
     Dates: start: 20241223
  9. CLOTRIMAZOLE [Concomitant]
     Active Substance: CLOTRIMAZOLE
     Indication: Product used for unknown indication
     Dosage: 1 % CREAM, APPLY TO THE AFFECTED AREA 2 TIMES DAILY.
     Route: 061
  10. COTELLIC [Concomitant]
     Active Substance: COBIMETINIB FUMARATE
     Indication: Product used for unknown indication
     Dosage: 1 TABLET BY MOUTH EVERY DAY FOR 21 DAYS, THEN 7 DAYS OFF.
     Route: 048
  11. ENTRESTO [Concomitant]
     Active Substance: SACUBITRIL\VALSARTAN
     Indication: Product used for unknown indication
     Dosage: 49-51 MG TABLET 1 TABLET BY MOUTH 2 TIMES DAILY
     Route: 048
  12. FARXIGA [Concomitant]
     Active Substance: DAPAGLIFLOZIN PROPANEDIOL
     Indication: Product used for unknown indication
     Dosage: 1 TABLET BY MOUTH EVERY MORNING
     Route: 048
     Dates: start: 20241223
  13. OMEPRAZOLE [Concomitant]
     Active Substance: OMEPRAZOLE
     Indication: Product used for unknown indication
     Dosage: 1 CAPSULE BY MOUTH EVERY MORNING.
     Route: 048
  14. ONDANSETRON [Concomitant]
     Active Substance: ONDANSETRON
     Indication: Product used for unknown indication
     Dosage: 1 TABLET BY MOUTH EVERY 8 HOURS IF NEEDED.
     Route: 048
  15. SPIRONOLACTONE [Concomitant]
     Active Substance: SPIRONOLACTONE
     Indication: Product used for unknown indication
     Dosage: 1 TABLET BY MOUTH EVERY DAY.
     Route: 048
  16. SULFAMETHOXAZOLE\TRIMETHOPRIM [Concomitant]
     Active Substance: SULFAMETHOXAZOLE\TRIMETHOPRIM
     Indication: Product used for unknown indication
     Dosage: (800-160 MG TABLET) 1 TABLET BY MOUTH 2 TIMES A DAY.
  17. TESTOSTERONE [Concomitant]
     Active Substance: TESTOSTERONE
     Indication: Product used for unknown indication
     Dosage: 20.25 MG/1.25 GRAM (1.62 %) GEL. 2 PUMPS TO THE SKIN 5 DAYS/WEEK.
     Route: 061
  18. TRIAMCINOLONE [Concomitant]
     Active Substance: TRIAMCINOLONE
     Indication: Product used for unknown indication
     Dosage: 0.1 % OINTMENT. TWICE A DAY AS NEEDED TO AFFECTED AREAS ON LEG
     Route: 061
  19. VITAMIN D3 [Concomitant]
     Active Substance: CHOLECALCIFEROL
     Indication: Product used for unknown indication
     Dosage: 10 MCG (400 UNIT) TABLET

REACTIONS (3)
  - Insomnia [Not Recovered/Not Resolved]
  - Off label use [Not Recovered/Not Resolved]
  - Pruritus [Not Recovered/Not Resolved]

NARRATIVE: CASE EVENT DATE: 20250826
